FAERS Safety Report 4335167-7 (Version None)
Quarter: 2004Q2

REPORT INFORMATION
  Report Type: 
  Country: None (occurrence: None)
  Receive Date: 20040408
  Receipt Date: 20040318
  Transmission Date: 20050107
  Serious: Yes (Life-Threatening, Hospitalization)
  Sender: FDA-Public Use
  Company Number: GB-BRISTOL-MYERS SQUIBB COMPANY-12536090

PATIENT
  Age: 31 Year
  Sex: Female
  Weight: 75 kg

DRUGS (5)
  1. CISPLATIN [Suspect]
     Indication: OVARIAN CANCER
     Route: 042
     Dates: start: 20040121
  2. ETOPOSIDE [Suspect]
     Indication: OVARIAN CANCER
     Route: 042
     Dates: start: 20040121
  3. BLEOMYCIN SULFATE [Suspect]
     Indication: OVARIAN CANCER
     Route: 042
     Dates: start: 20040121
  4. LACTULOSE [Concomitant]
     Indication: CONSTIPATION
     Route: 048
  5. DIFFERIN [Concomitant]
     Indication: PROPHYLAXIS
     Route: 048

REACTIONS (2)
  - NEUTROPENIC SEPSIS [None]
  - PHARYNGOLARYNGEAL PAIN [None]
